FAERS Safety Report 7353186-3 (Version None)
Quarter: 2011Q1

REPORT INFORMATION
  Report Type: 
  Country: None (occurrence: None)
  Receive Date: 20110310
  Receipt Date: 20110310
  Transmission Date: 20110831
  Serious: No
  Sender: FDA-Public Use
  Company Number: None

PATIENT
  Sex: Male
  Weight: 99 kg

DRUGS (2)
  1. FLEBOGAMMA [Suspect]
     Indication: CHRONIC LYMPHOCYTIC LEUKAEMIA
     Dosage: 50,000MG IV DRIP
     Route: 041
     Dates: start: 20101012, end: 20110304
  2. FLEBOGAMMA [Suspect]

REACTIONS (4)
  - CHILLS [None]
  - TEARFULNESS [None]
  - HYPERTENSION [None]
  - INFUSION RELATED REACTION [None]
